FAERS Safety Report 7841472-X (Version None)
Quarter: 2011Q4

REPORT INFORMATION
  Report Type: 
  Country: None (occurrence: None)
  Receive Date: 20111025
  Receipt Date: 20111019
  Transmission Date: 20120403
  Serious: Yes (Death, Life-Threatening, Hospitalization)
  Sender: FDA-Public Use
  Company Number: DE-JNJFOC-20100708578

PATIENT
  Sex: Male
  Weight: 80 kg

DRUGS (6)
  1. SIMVASTATIN [Concomitant]
     Indication: HYPERLIPIDAEMIA
     Route: 048
     Dates: start: 20050101
  2. METAMIZOL [Concomitant]
     Indication: RHEUMATOID ARTHRITIS
     Route: 048
     Dates: start: 20090901
  3. SIMPONI [Suspect]
     Indication: RHEUMATOID ARTHRITIS
     Route: 058
     Dates: start: 20100408, end: 20100607
  4. ALLOPURINOL [Concomitant]
     Indication: HYPERURICAEMIA
     Route: 048
     Dates: start: 20030101
  5. FENISTIL [Concomitant]
     Indication: SEASONAL ALLERGY
     Route: 048
     Dates: start: 20090901
  6. CALCIUM AND VITAMIN D3 [Concomitant]
     Indication: OSTEOPOROSIS
     Route: 048
     Dates: start: 20090401

REACTIONS (2)
  - RESPIRATORY FAILURE [None]
  - SEPTIC SHOCK [None]
